FAERS Safety Report 10546242 (Version 2)
Quarter: 2015Q1

REPORT INFORMATION
  Report Type: Report from Study
  Country: US (occurrence: US)
  Receive Date: 20141027
  Receipt Date: 20150309
  Transmission Date: 20150720
  Serious: No
  Sender: FDA-Public Use
  Company Number: US-ABBVIE-14P-163-1228534-00

PATIENT
  Sex: Female

DRUGS (1)
  1. LUPRON DEPOT [Suspect]
     Active Substance: LEUPROLIDE ACETATE
     Indication: ENDOMETRIOSIS
     Route: 065
     Dates: start: 20140407

REACTIONS (5)
  - Hunger [Unknown]
  - Pregnancy [Unknown]
  - Fatigue [Unknown]
  - Weight decreased [Unknown]
  - Weight increased [Unknown]
